FAERS Safety Report 5604858-X (Version None)
Quarter: 2008Q1

REPORT INFORMATION
  Report Type: 
  Country: None (occurrence: None)
  Receive Date: 20080128
  Receipt Date: 20080115
  Transmission Date: 20080703
  Serious: Yes (Hospitalization, Other)
  Sender: FDA-Public Use
  Company Number: US-ELI_LILLY_AND_COMPANY-USA040568391

PATIENT
  Age: 60 Year
  Sex: Female
  Weight: 62.273 kg

DRUGS (4)
  1. EVISTA [Suspect]
     Indication: PROPHYLAXIS
     Dosage: 60 MG, DAILY (1/D)
     Route: 048
     Dates: start: 19990101
  2. KLONOPIN [Concomitant]
     Dosage: UNK, DAILY (1/D)
     Route: 065
     Dates: start: 19940101
  3. ATORVASTATIN [Concomitant]
     Indication: BLOOD CHOLESTEROL INCREASED
     Dosage: UNK, UNKNOWN
     Route: 065
     Dates: start: 20040101
  4. CALCIUM GLUCONATE [Concomitant]
     Dosage: 1200 MG, DAILY (1/D)

REACTIONS (20)
  - BLOOD CHOLESTEROL INCREASED [None]
  - BODY HEIGHT DECREASED [None]
  - BONE DENSITY DECREASED [None]
  - COUGH [None]
  - DRUG INEFFECTIVE [None]
  - ERYTHEMA [None]
  - HIATUS HERNIA [None]
  - HOT FLUSH [None]
  - HYPERHIDROSIS [None]
  - JOINT SWELLING [None]
  - MUSCLE SPASMS [None]
  - OEDEMA PERIPHERAL [None]
  - OSTEOPOROSIS [None]
  - PARAESTHESIA [None]
  - PELVIC FRACTURE [None]
  - ROAD TRAFFIC ACCIDENT [None]
  - SYNOVIAL CYST [None]
  - UPPER LIMB FRACTURE [None]
  - WEIGHT DECREASED [None]
  - WEIGHT INCREASED [None]
